FAERS Safety Report 12775776 (Version 1)
Quarter: 2016Q3

REPORT INFORMATION
  Report Type: Spontaneous
  Country: US (occurrence: US)
  Receive Date: 20160923
  Receipt Date: 20160923
  Transmission Date: 20161109
  Serious: No
  Sender: FDA-Public Use
  Company Number: US-PFIZER INC-2016437955

PATIENT
  Age: 79 Year
  Sex: Female

DRUGS (13)
  1. TENORMIN [Concomitant]
     Active Substance: ATENOLOL
     Dosage: 25 MG, 2X/DAY (TAKE 1 TABLET BY MOUTH TWICE A DAY)
     Route: 048
  2. PROAIR HFA [Concomitant]
     Active Substance: ALBUTEROL SULFATE
     Dosage: 90 UG, AS NEEDED (INHALE 2 PUFFS BY MOUTH FOUR TIMES A DAY IF NEEDED)
     Route: 048
  3. FLOVENT DISKUS /BLIST DISKUS INHALER [Concomitant]
     Dosage: 250 UG, 2X/DAY (INHALE 1 PUFF BY MOUTH TWICE A DAY)
     Route: 048
  4. PRILOSEC [Concomitant]
     Active Substance: OMEPRAZOLE MAGNESIUM
     Dosage: 20 MG, 1X/DAY [TAKE 1 CAPSULE BY MOUTH ONCE DAILY BEFORE BREAKFAST AS DIRECTED]
     Route: 048
  5. COMBIVENT RESPIMAT [Concomitant]
     Active Substance: ALBUTEROL SULFATE\IPRATROPIUM BROMIDE
     Indication: WHEEZING
     Dosage: 1 DF, AS NEEDED (ALBUTEROL-100 IPRATROPIUM -20 MCG/PUFF INHALER INHALE 1 PUFF INTO THE LUNGS)
     Route: 055
  6. LEVOTHROID [Concomitant]
     Active Substance: LEVOTHYROXINE SODIUM
     Dosage: 125 UG, 1X/DAY
     Route: 048
  7. PRADAXA [Concomitant]
     Active Substance: DABIGATRAN ETEXILATE MESYLATE
     Dosage: 150 MG, 2X/DAY
     Route: 048
  8. SYNTHROID [Concomitant]
     Active Substance: LEVOTHYROXINE SODIUM
     Dosage: 125 UG, 1X/DAY
     Route: 048
  9. COMBIVENT RESPIMAT [Concomitant]
     Active Substance: ALBUTEROL SULFATE\IPRATROPIUM BROMIDE
     Indication: DYSPNOEA
  10. IBRANCE [Suspect]
     Active Substance: PALBOCICLIB
     Indication: BREAST CANCER
     Dosage: 125 MG, CYCLIC (1 PO Q DAY FOR 21 DAYS THEN 7 DAYS OFF )
     Route: 048
  11. MAXZIDE [Concomitant]
     Active Substance: HYDROCHLOROTHIAZIDE\TRIAMTERENE
     Dosage: UNK, 1X/DAY [37.5-25 MG, TAKE 1 AND 1/2 TABLETS BY MOUTH ONCE DAILY]
     Route: 048
  12. PROLIA [Concomitant]
     Active Substance: DENOSUMAB
     Dosage: 1 ML, UNK [INJECT 1 ML UNDER THE SKIN EVERY 6 MONTHS]
     Route: 058
  13. KLOR-CON [Concomitant]
     Active Substance: POTASSIUM CHLORIDE
     Dosage: 10 MEQ, DAILY (TAKE 1 TABLET)
     Route: 048

REACTIONS (1)
  - Tumour marker increased [Unknown]
